FAERS Safety Report 14439998 (Version 1)
Quarter: 2018Q1

REPORT INFORMATION
  Report Type: Spontaneous
  Country: US (occurrence: US)
  Receive Date: 20180125
  Receipt Date: 20180125
  Transmission Date: 20180509
  Serious: Yes (Other)
  Sender: FDA-Public Use
  Company Number: US-OTSUKA-2018_000950

PATIENT
  Sex: Male

DRUGS (1)
  1. ABILIFY [Suspect]
     Active Substance: ARIPIPRAZOLE
     Indication: BIPOLAR DISORDER
     Dosage: 30 MG, QD
     Route: 048

REACTIONS (8)
  - Vascular graft [Unknown]
  - Tremor [Not Recovered/Not Resolved]
  - Hyperhidrosis [Recovered/Resolved]
  - Memory impairment [Not Recovered/Not Resolved]
  - Parkinsonism [Unknown]
  - Anxiety [Recovered/Resolved]
  - Myocardial infarction [Unknown]
  - Staring [Not Recovered/Not Resolved]

NARRATIVE: CASE EVENT DATE: 201608
